FAERS Safety Report 24813488 (Version 1)
Quarter: 2025Q1

REPORT INFORMATION
  Report Type: Spontaneous
  Country: US (occurrence: US)
  Receive Date: 20250107
  Receipt Date: 20250107
  Transmission Date: 20250409
  Serious: No
  Sender: Kenvue
  Company Number: US-KENVUE-20241203681

PATIENT
  Sex: Female

DRUGS (2)
  1. WOMENS ROGAINE UNSCENTED [Suspect]
     Active Substance: MINOXIDIL
     Indication: Product used for unknown indication
     Route: 061
  2. ESSENTIAL OILS NOS [Concomitant]
     Indication: Product used for unknown indication
     Route: 061

REACTIONS (2)
  - Alopecia [Unknown]
  - Off label use [Unknown]
